FAERS Safety Report 16270372 (Version 1)
Quarter: 2019Q2

REPORT INFORMATION
  Report Type: Spontaneous
  Country: US (occurrence: US)
  Receive Date: 20190329
  Receipt Date: 20190329
  Transmission Date: 20190711
  Serious: Yes (Death)
  Sender: FDA-Public Use
  Company Number: None

PATIENT
  Age: 34 Year
  Sex: Female

DRUGS (1)
  1. ADEMPAS [Suspect]
     Active Substance: RIOCIGUAT
     Indication: PULMONARY ARTERIAL HYPERTENSION
     Route: 048
     Dates: start: 20160602, end: 20190321

REACTIONS (6)
  - Hypoxia [None]
  - Intra-abdominal fluid collection [None]
  - Pneumonia [None]
  - General physical health deterioration [None]
  - Acute kidney injury [None]
  - Hypotension [None]

NARRATIVE: CASE EVENT DATE: 20190321
